FAERS Safety Report 6529165-2 (Version None)
Quarter: 2010Q1

REPORT INFORMATION
  Report Type: 
  Country: None (occurrence: None)
  Receive Date: 20100107
  Receipt Date: 20100104
  Transmission Date: 20100710
  Serious: Yes (Other)
  Sender: FDA-Public Use
  Company Number: US-RB-000191-10

PATIENT
  Age: 18 Year
  Sex: Female

DRUGS (2)
  1. DELSYM ADULT COUGH SYRUP [Suspect]
     Dosage: TOOK 10 ML DOSE ON 03-JAN-2010 AT NIGHT AND THEN TOOK A 10ML DOSE ON 04-JAN-2010 IN THE MORNING
     Route: 048
     Dates: start: 20100103
  2. ADVIL [Concomitant]
     Dosage: TOOK 2 ADVIL

REACTIONS (2)
  - LIP SWELLING [None]
  - URTICARIA [None]
